FAERS Safety Report 8934130 (Version 1)
Quarter: 2012Q4

REPORT INFORMATION
  Report Type: 
  Country: US (occurrence: US)
  Receive Date: 20121129
  Receipt Date: 20121129
  Transmission Date: 20130627
  Serious: No
  Sender: FDA-Public Use
  Company Number: US-GLAXOSMITHKLINE-A0971642A

PATIENT
  Age: 40 Year
  Sex: Female

DRUGS (12)
  1. BUPROPION HYDROCHLORIDE [Suspect]
     Indication: DEPRESSION
     Dosage: 300MG Per day
     Route: 048
  2. CHEMOTHERAPY [Concomitant]
  3. WARFARIN [Concomitant]
  4. REMODULIN [Concomitant]
  5. REVATIO [Concomitant]
  6. LEVOTHYROXIN [Concomitant]
  7. GABAPENTIN [Concomitant]
  8. OXYCODONE [Concomitant]
  9. SPIRONOLACTONE [Concomitant]
  10. FUROSEMIDE [Concomitant]
  11. ALLOPURINOL [Concomitant]
  12. DIGOXIN [Concomitant]

REACTIONS (1)
  - Depression [Not Recovered/Not Resolved]
